FAERS Safety Report 8192065-9 (Version None)
Quarter: 2012Q1

REPORT INFORMATION
  Report Type: 
  Country: None (occurrence: None)
  Receive Date: 20120307
  Receipt Date: 20120302
  Transmission Date: 20120608
  Serious: Yes (Hospitalization, Other)
  Sender: FDA-Public Use
  Company Number: US-BAYER-200934366NA

PATIENT
  Age: 61 Year
  Sex: Male

DRUGS (20)
  1. TRASYLOL [Suspect]
     Indication: AORTIC VALVE REPLACEMENT
     Dosage: 1 ML, UNK
     Route: 042
     Dates: start: 20050526, end: 20050526
  2. MAGNESIUM SULFATE [Concomitant]
     Dosage: UNK
     Route: 042
     Dates: start: 20050526, end: 20050526
  3. ZINACEF [Concomitant]
     Dosage: 3 G, UNK
     Route: 042
     Dates: start: 20050526, end: 20050526
  4. HEPARIN [Concomitant]
     Dosage: 41000 U, UNK
     Route: 042
     Dates: start: 20050526, end: 20050526
  5. ALLOPURINOL [Concomitant]
     Dosage: 300 MG, QD
     Route: 048
  6. TRASYLOL [Suspect]
     Dosage: 50 ML/HR
     Route: 042
     Dates: start: 20050526, end: 20050526
  7. GLIPIZIDE [Concomitant]
     Dosage: 5 MG, QD
     Route: 048
  8. VECURONIUM BROMIDE [Concomitant]
     Dosage: UNK
     Route: 042
     Dates: start: 20050526, end: 20050526
  9. PLASMALYTE [GLUCOSE,POTASSIUM CHLORIDE] [Concomitant]
     Dosage: 4000 ML
     Dates: start: 20050506
  10. PRIMACOR [Concomitant]
     Dosage: UNK
     Route: 042
     Dates: start: 20050526, end: 20050526
  11. VERSED [Concomitant]
     Dosage: 5 MG, UNK
     Route: 042
     Dates: start: 20050526, end: 20050526
  12. FENTANYL-100 [Concomitant]
     Dosage: UNK
     Route: 042
     Dates: start: 20050526, end: 20050526
  13. HYDROCHLOROTHIAZIDE [Concomitant]
     Dosage: 12.5 MG, QD
     Route: 048
  14. PERIDEX [Concomitant]
     Route: 048
  15. LIDOCAINE [Concomitant]
     Dosage: UNK
     Route: 042
     Dates: start: 20050526, end: 20050526
  16. TRASYLOL [Suspect]
     Dosage: 200 ML, UNK
     Route: 042
     Dates: start: 20050526, end: 20050526
  17. LEVOPHED [Concomitant]
     Dosage: UNK
     Route: 042
     Dates: start: 20050526, end: 20050526
  18. ROCURONIUM BROMIDE [Concomitant]
     Dosage: 100 MG, UNK
     Route: 042
     Dates: start: 20050526, end: 20050526
  19. NITROGLYCERIN [Concomitant]
     Dosage: UNK
     Route: 042
     Dates: start: 20050526, end: 20050526
  20. LORTAB [Concomitant]
     Indication: BACK PAIN
     Dosage: 1 TO 2 TABS EVERY 4-6 HOURS AS NEEDED
     Route: 048

REACTIONS (12)
  - RENAL FAILURE [None]
  - ANXIETY [None]
  - EMOTIONAL DISTRESS [None]
  - ANHEDONIA [None]
  - RENAL INJURY [None]
  - INJURY [None]
  - PAIN [None]
  - MULTI-ORGAN FAILURE [None]
  - FEAR [None]
  - UNEVALUABLE EVENT [None]
  - DEPRESSION [None]
  - NERVOUSNESS [None]
